FAERS Safety Report 6032019-1 (Version None)
Quarter: 2009Q1

REPORT INFORMATION
  Report Type: 
  Country: None (occurrence: None)
  Receive Date: 20090108
  Receipt Date: 20090102
  Transmission Date: 20090719
  Serious: Yes (Other)
  Sender: FDA-Public Use
  Company Number: PHHY2008AT24272

PATIENT
  Sex: Female
  Weight: 50 kg

DRUGS (5)
  1. TASIGNA [Suspect]
     Dosage: 800 MG DAILY
     Dates: start: 20080201, end: 20080401
  2. TASIGNA [Suspect]
     Dosage: 400 MG
     Dates: start: 20080401, end: 20080601
  3. TASIGNA [Suspect]
     Dosage: 200 MG
     Dates: start: 20080601, end: 20080904
  4. TASIGNA [Suspect]
     Dosage: LOWER DOSAGE
     Dates: start: 20081117
  5. ASPIRIN [Concomitant]
     Dosage: 100 MG

REACTIONS (8)
  - ANAEMIA [None]
  - ANAPHYLACTIC REACTION [None]
  - HAEMOGLOBIN DECREASED [None]
  - LEUKOPENIA [None]
  - MALAISE [None]
  - NAUSEA [None]
  - THROMBOCYTOPENIA [None]
  - VOMITING [None]
